FAERS Safety Report 6529751-X (Version None)
Quarter: 2010Q1

REPORT INFORMATION
  Report Type: 
  Country: None (occurrence: None)
  Receive Date: 20100107
  Receipt Date: 20100104
  Transmission Date: 20100710
  Serious: Yes (Life-Threatening, Hospitalization, Other)
  Sender: FDA-Public Use
  Company Number: FR-BRISTOL-MYERS SQUIBB COMPANY-14920904

PATIENT
  Age: 86 Year
  Sex: Male

DRUGS (6)
  1. COUMADIN [Suspect]
     Indication: DEEP VEIN THROMBOSIS
     Route: 048
  2. AMLOR [Concomitant]
     Dosage: AMLOR 5  1 D.F=ONE TABLET DAILY
  3. TEMESTA [Concomitant]
  4. DEROXAT [Concomitant]
  5. OMEPRAZOLE [Concomitant]
  6. MOLSIDOMINE [Concomitant]

REACTIONS (3)
  - ACCIDENTAL OVERDOSE [None]
  - FALL [None]
  - SUBDURAL HAEMATOMA [None]
